FAERS Safety Report 8837888 (Version 1)
Quarter: 2012Q4

REPORT INFORMATION
  Report Type: 
  Country: DE (occurrence: DE)
  Receive Date: 20121012
  Receipt Date: 20121012
  Transmission Date: 20130627
  Serious: Yes (Other)
  Sender: FDA-Public Use
  Company Number: DE-PFIZER INC-2012254437

PATIENT
  Sex: Male

DRUGS (2)
  1. LYRICA [Suspect]
     Dosage: 100 mg, 2x/day
     Route: 048
  2. LYRICA [Suspect]
     Dosage: 150 mg, 2x/day
     Route: 048

REACTIONS (1)
  - Renal function test abnormal [Recovering/Resolving]
